FAERS Safety Report 9163754 (Version 2)
Quarter: 2013Q3

REPORT INFORMATION
  Report Type: Report from Study
  Country: GB (occurrence: GB)
  Receive Date: 20130314
  Receipt Date: 20130730
  Transmission Date: 20140515
  Serious: Yes (Death, Other)
  Sender: FDA-Public Use
  Company Number: GB-ABBOTT-11P-167-0723322-00

PATIENT
  Age: 61 Year
  Sex: Male
  Weight: 91 kg

DRUGS (4)
  1. HUMIRA 40 MG/ 0.8 ML PRE-FILLED SYRINGE [Suspect]
     Indication: RHEUMATOID ARTHRITIS
     Route: 058
     Dates: start: 20060403, end: 20060422
  2. METHOTREXATE [Concomitant]
     Indication: RHEUMATOID ARTHRITIS
     Dates: start: 20051116
  3. HYDROXYCHLOROQUINE [Concomitant]
     Indication: RHEUMATOID ARTHRITIS
     Dates: start: 20090917
  4. STEROIDS UNSPECIFIED [Concomitant]
     Indication: RHEUMATOID ARTHRITIS

REACTIONS (5)
  - Neuroendocrine carcinoma of the skin [Fatal]
  - Diabetes mellitus [Fatal]
  - Pulmonary fibrosis [Fatal]
  - Spinal column stenosis [Fatal]
  - Carcinoma in situ of skin [Unknown]
